FAERS Safety Report 8484289-8 (Version None)
Quarter: 2012Q3

REPORT INFORMATION
  Report Type: 
  Country: None (occurrence: None)
  Receive Date: 20120703
  Receipt Date: 20120625
  Transmission Date: 20120928
  Serious: Yes (Hospitalization)
  Sender: FDA-Public Use
  Company Number: US-BAYER-2012-064016

PATIENT
  Age: 43 Year
  Sex: Female
  Weight: 86.621 kg

DRUGS (21)
  1. AMOXICILLIN [Concomitant]
     Dosage: 1 G,1 TIMES
     Route: 048
     Dates: start: 20030205
  2. S-ADENOSYL-L-METHIONINE [Concomitant]
  3. B5 [Concomitant]
  4. C-SILVER [Concomitant]
  5. GLUCOSAMINE [Concomitant]
  6. DERCOCET [Concomitant]
  7. GINKOBA [Concomitant]
     Route: 048
  8. ST. JOHN'S WORT [Concomitant]
  9. VITAMIN E [Concomitant]
  10. ASCORBIC ACID [Concomitant]
  11. DIFLUCAN [Concomitant]
     Dosage: 150 MG, UNK
  12. IBUPROFEN [Concomitant]
  13. GENTAMICIN [Concomitant]
     Dosage: 80 MG, 1 TIMES
     Route: 030
     Dates: start: 20030205
  14. PROCTOFOAM HC [Concomitant]
  15. CAPRYLIC ACID [Concomitant]
  16. DIGESTIVE ENZYMES [Concomitant]
  17. CALCIUM [Concomitant]
  18. WILD YAM [Concomitant]
  19. MAGNESIUM SULFATE [Concomitant]
  20. EPSOM SALTS [Concomitant]
  21. YASMIN [Suspect]
     Indication: MENSTRUATION IRREGULAR

REACTIONS (1)
  - DEEP VEIN THROMBOSIS [None]
